FAERS Safety Report 7071111-X (Version None)
Quarter: 2010Q4

REPORT INFORMATION
  Report Type: 
  Country: None (occurrence: None)
  Receive Date: 20101027
  Receipt Date: 20101027
  Transmission Date: 20110411
  Serious: Yes (Hospitalization)
  Sender: FDA-Public Use
  Company Number: None

PATIENT
  Age: 40 Year
  Sex: Female
  Weight: 52.1637 kg

DRUGS (2)
  1. LEVAQUIN [Suspect]
     Indication: DYSPNOEA
     Dosage: 750 MG ONCE DAILY PO
     Route: 048
     Dates: start: 20101025, end: 20101025
  2. LEVAQUIN [Suspect]
     Indication: HEART RATE INCREASED
     Dosage: 750 MG ONCE DAILY PO
     Route: 048
     Dates: start: 20101025, end: 20101025

REACTIONS (7)
  - BALANCE DISORDER [None]
  - BLOOD PRESSURE INCREASED [None]
  - CHEST DISCOMFORT [None]
  - DIZZINESS [None]
  - DYSPNOEA [None]
  - HEART RATE INCREASED [None]
  - PHARYNGEAL OEDEMA [None]
